FAERS Safety Report 8072923-6 (Version None)
Quarter: 2012Q1

REPORT INFORMATION
  Report Type: 
  Country: None (occurrence: None)
  Receive Date: 20120120
  Receipt Date: 20120105
  Transmission Date: 20120608
  Serious: Yes (Death)
  Sender: FDA-Public Use
  Company Number: EU-2011-10576

PATIENT
  Age: 76 Year
  Sex: Female
  Weight: 69 kg

DRUGS (8)
  1. OMEPRAZOLE [Concomitant]
  2. FUROSEMID (FUROSEMID) [Concomitant]
  3. SPIRONOLACTONE [Concomitant]
  4. LAKTULOS (LACTULOSE) [Concomitant]
  5. SAMSCA [Suspect]
     Indication: HYPONATRAEMIA
     Dosage: 30 MG MILLIGRAM(S), DAILY DOSE, ORAL
     Dates: start: 20111109, end: 20111110
  6. SAMSCA [Suspect]
     Indication: HYPONATRAEMIA
     Dosage: 30 MG MILLIGRAM(S), DAILY DOSE, ORAL
     Dates: start: 20111106, end: 20111107
  7. ATROVENT [Concomitant]
  8. ACETYLCYSTEIN (ACETYLCYSTEIN) [Concomitant]

REACTIONS (5)
  - OFF LABEL USE [None]
  - ENCEPHALOPATHY [None]
  - HEPATIC CIRRHOSIS [None]
  - ASCITES [None]
  - DISEASE PROGRESSION [None]
